FAERS Safety Report 5645483-4 (Version None)
Quarter: 2008Q1

REPORT INFORMATION
  Report Type: 
  Country: None (occurrence: None)
  Receive Date: 20080229
  Receipt Date: 20071011
  Transmission Date: 20080703
  Serious: No
  Sender: FDA-Public Use
  Company Number: US-BRISTOL-MYERS SQUIBB COMPANY-13938949

PATIENT
  Sex: Male

DRUGS (1)
  1. TAXOL [Suspect]
     Route: 042

REACTIONS (1)
  - INCORRECT DRUG ADMINISTRATION DURATION [None]
